FAERS Safety Report 7606355-9 (Version None)
Quarter: 2011Q3

REPORT INFORMATION
  Report Type: 
  Country: None (occurrence: None)
  Receive Date: 20110713
  Receipt Date: 20110704
  Transmission Date: 20111222
  Serious: Yes (Hospitalization)
  Sender: FDA-Public Use
  Company Number: FR-CELGENEUS-056-C5013-11062466

PATIENT
  Sex: Female
  Weight: 39 kg

DRUGS (23)
  1. ZOMETA [Concomitant]
     Indication: PROPHYLAXIS
     Route: 048
     Dates: start: 20100528
  2. ZOFENYL [Concomitant]
     Dosage: 30 MILLIGRAM
     Route: 048
     Dates: start: 20100816
  3. EPREX [Concomitant]
     Route: 058
     Dates: start: 20110429
  4. MORPHINE SULFATE [Concomitant]
     Indication: BONE PAIN
     Route: 048
     Dates: start: 20110429
  5. DEXAMETHASONE [Suspect]
     Route: 065
     Dates: start: 20110527, end: 20110612
  6. SINGULAIR [Concomitant]
     Indication: ASTHMA
     Dosage: 10 MILLIGRAM
     Route: 048
     Dates: start: 20030201
  7. ACETAMINOPHEN [Concomitant]
     Route: 048
     Dates: start: 20100225
  8. SYMBICORT [Concomitant]
     Route: 055
  9. LENALIDOMIDE [Suspect]
     Indication: MULTIPLE MYELOMA
     Route: 048
     Dates: start: 20100329
  10. SYMBICORT [Concomitant]
     Indication: ASTHMA
     Dosage: 2 DOSAGE FORMS
     Route: 055
     Dates: start: 20100313
  11. ATARAX [Concomitant]
     Indication: PROPHYLAXIS
     Route: 048
     Dates: start: 20100816
  12. DEXAMETHASONE [Suspect]
     Route: 065
     Dates: start: 20110708
  13. DEBRIDAT [Concomitant]
     Indication: PROPHYLAXIS
     Route: 048
     Dates: start: 20020201
  14. POLYETHYLENE GLYCOL [Concomitant]
     Indication: CONSTIPATION
     Route: 048
     Dates: start: 20101122
  15. MORPHINE SULFATE [Concomitant]
     Indication: BONE PAIN
     Route: 048
     Dates: start: 20110429
  16. LENALIDOMIDE [Suspect]
     Route: 048
     Dates: start: 20110527, end: 20110612
  17. LENALIDOMIDE [Suspect]
     Route: 048
     Dates: start: 20110708
  18. DEXAMETHASONE [Suspect]
     Indication: MULTIPLE MYELOMA
     Route: 065
     Dates: start: 20100329
  19. ALLOPURINOL [Concomitant]
     Indication: PROPHYLAXIS
     Dosage: 300 MILLIGRAM
     Route: 048
     Dates: start: 20100329
  20. IMOVANE [Concomitant]
     Indication: PROPHYLAXIS
     Dosage: 7.5 MILLIGRAM
     Route: 048
     Dates: start: 20100329
  21. ASPIRIN [Concomitant]
     Indication: THROMBOSIS PROPHYLAXIS
     Dosage: 75 MILLIGRAM
     Route: 048
     Dates: start: 20090801
  22. NEXIUM [Concomitant]
     Indication: GASTRITIS PROPHYLAXIS
     Dosage: 40 MILLIGRAM
     Route: 048
     Dates: start: 20100329
  23. EBASTINE [Concomitant]
     Indication: ASTHMA
     Dosage: 10 MILLIGRAM
     Route: 048
     Dates: start: 20101122

REACTIONS (1)
  - LUNG DISORDER [None]
